FAERS Safety Report 17360572 (Version 1)
Quarter: 2020Q1

REPORT INFORMATION
  Report Type: Spontaneous
  Country: FR (occurrence: FR)
  Receive Date: 20200203
  Receipt Date: 20200203
  Transmission Date: 20200409
  Serious: Yes (Hospitalization)
  Sender: FDA-Public Use
  Company Number: NVSC2020FR023014

PATIENT
  Age: 66 Year
  Sex: Female
  Weight: 55 kg

DRUGS (4)
  1. DEPAMIDE [Suspect]
     Active Substance: VALPROMIDE
     Indication: TOXICITY TO VARIOUS AGENTS
     Dosage: 1200 MG, (TOTAL)
     Route: 048
     Dates: start: 20190306, end: 20190306
  2. LORMETAZEPAM [Suspect]
     Active Substance: LORMETAZEPAM
     Indication: TOXICITY TO VARIOUS AGENTS
     Dosage: 8 MG, (TOTAL)
     Route: 048
     Dates: start: 20190306, end: 20190306
  3. TERALITHE [Suspect]
     Active Substance: LITHIUM CARBONATE
     Indication: TOXICITY TO VARIOUS AGENTS
     Dosage: 3000 MG, (TOTAL)
     Route: 048
     Dates: start: 20190306, end: 20190306
  4. TEGRETOL [Suspect]
     Active Substance: CARBAMAZEPINE
     Indication: TOXICITY TO VARIOUS AGENTS
     Dosage: 2800 MG, (TOTAL)
     Route: 048
     Dates: start: 20190306, end: 20190306

REACTIONS (3)
  - Fall [Recovered/Resolved]
  - Tremor [Recovered/Resolved]
  - Somnolence [Recovered/Resolved]

NARRATIVE: CASE EVENT DATE: 20190306
